FAERS Safety Report 6497566-7 (Version None)
Quarter: 2009Q4

REPORT INFORMATION
  Report Type: 
  Country: None (occurrence: None)
  Receive Date: 20091211
  Receipt Date: 20091127
  Transmission Date: 20100525
  Serious: Yes (Other)
  Sender: FDA-Public Use
  Company Number: DE-1180003

PATIENT
  Sex: Female

DRUGS (1)
  1. FLUORESCITE [Suspect]
     Dosage: 4 ML INTRAVENOUS BOLUS
     Route: 040

REACTIONS (3)
  - ANAPHYLACTIC SHOCK [None]
  - PALLOR [None]
  - SYNCOPE [None]
